FAERS Safety Report 18623840 (Version 2)
Quarter: 2020Q4

REPORT INFORMATION
  Report Type: Report from Study
  Country: US (occurrence: US)
  Receive Date: 20201216
  Receipt Date: 20201216
  Transmission Date: 20210114
  Serious: Yes (Hospitalization)
  Sender: FDA-Public Use
  Company Number: US-TAKEDA-US202010210

PATIENT
  Age: 57 Year
  Sex: Male

DRUGS (12)
  1. C1 INHIBITOR (HUMAN) [Suspect]
     Active Substance: HUMAN C1-ESTERASE INHIBITOR
     Dosage: 1500 INTERNATIONAL UNIT, EVERY 3 DAYS
     Route: 058
     Dates: start: 201610
  2. C1 INHIBITOR (HUMAN) [Suspect]
     Active Substance: HUMAN C1-ESTERASE INHIBITOR
     Indication: HEREDITARY ANGIOEDEMA
     Dosage: 1500 INTERNATIONAL UNIT, EVERY 3 DAYS
     Route: 042
     Dates: start: 20161012
  3. C1 INHIBITOR (HUMAN) [Suspect]
     Active Substance: HUMAN C1-ESTERASE INHIBITOR
     Indication: IMMUNE SYSTEM DISORDER
     Dosage: 1500 INTERNATIONAL UNIT, EVERY 3 DAYS
     Route: 042
     Dates: start: 20161011
  4. C1 INHIBITOR (HUMAN) [Suspect]
     Active Substance: HUMAN C1-ESTERASE INHIBITOR
     Dosage: 1500 INTERNATIONAL UNIT, EVERY 3 DAYS
     Route: 058
     Dates: start: 201610
  5. C1 INHIBITOR (HUMAN) [Suspect]
     Active Substance: HUMAN C1-ESTERASE INHIBITOR
     Indication: IMMUNE SYSTEM DISORDER
     Dosage: 1500 INTERNATIONAL UNIT, EVERY 3 DAYS
     Route: 042
     Dates: start: 20161011
  6. C1 INHIBITOR (HUMAN) [Suspect]
     Active Substance: HUMAN C1-ESTERASE INHIBITOR
     Dosage: 1500 INTERANATIONAL UNIT, EVERY 3 DAYS
     Route: 058
     Dates: start: 20161011
  7. C1 INHIBITOR (HUMAN) [Suspect]
     Active Substance: HUMAN C1-ESTERASE INHIBITOR
     Dosage: 1500 INTERANATIONAL UNIT, EVERY 3 DAYS
     Route: 058
     Dates: start: 20161011
  8. C1 INHIBITOR (HUMAN) [Suspect]
     Active Substance: HUMAN C1-ESTERASE INHIBITOR
     Dosage: 1500 INTERNATIONAL UNIT, EVERY 3 DAYS
     Route: 058
     Dates: start: 201610
  9. C1 INHIBITOR (HUMAN) [Suspect]
     Active Substance: HUMAN C1-ESTERASE INHIBITOR
     Indication: IMMUNE SYSTEM DISORDER
     Dosage: 1500 INTERNATIONAL UNIT, EVERY 3 DAYS
     Route: 042
     Dates: start: 20161011
  10. C1 INHIBITOR (HUMAN) [Suspect]
     Active Substance: HUMAN C1-ESTERASE INHIBITOR
     Indication: HEREDITARY ANGIOEDEMA
     Dosage: 1500 INTERNATIONAL UNIT, EVERY 3 DAYS
     Route: 042
     Dates: start: 20161012
  11. C1 INHIBITOR (HUMAN) [Suspect]
     Active Substance: HUMAN C1-ESTERASE INHIBITOR
     Dosage: 1500 INTERANATIONAL UNIT, EVERY 3 DAYS
     Route: 058
     Dates: start: 20161011
  12. C1 INHIBITOR (HUMAN) [Suspect]
     Active Substance: HUMAN C1-ESTERASE INHIBITOR
     Indication: HEREDITARY ANGIOEDEMA
     Dosage: 1500 INTERNATIONAL UNIT, EVERY 3 DAYS
     Route: 042
     Dates: start: 20161012

REACTIONS (4)
  - Hereditary angioedema [Recovered/Resolved]
  - Product dose omission issue [Unknown]
  - Hospitalisation [Unknown]
  - Prescribed overdose [Unknown]

NARRATIVE: CASE EVENT DATE: 20200216
